FAERS Safety Report 8719560 (Version 2)
Quarter: 2013Q4

REPORT INFORMATION
  Report Type: Spontaneous
  Country: US (occurrence: US)
  Receive Date: 20120813
  Receipt Date: 20131031
  Transmission Date: 20140711
  Serious: No
  Sender: FDA-Public Use
  Company Number: US-009507513-2012SP035529

PATIENT
  Sex: Male

DRUGS (2)
  1. DR. SCHOLLS CLEAR AWAY WART REMOVER ONE STEP [Suspect]
     Indication: SKIN PAPILLOMA
     Dosage: UNK UNK, UNKNOWN
     Route: 061
     Dates: start: 201204
  2. DR. SCHOLLS CLEAR AWAY WART REMOVER ONE STEP [Suspect]
     Dosage: 1 DF, QOD OR QD
     Route: 061
     Dates: start: 201201, end: 201203

REACTIONS (1)
  - No therapeutic response [Unknown]
